FAERS Safety Report 9426482 (Version 1)
Quarter: 2013Q3

REPORT INFORMATION
  Report Type: Spontaneous
  Country: US (occurrence: None)
  Receive Date: 20130729
  Receipt Date: 20130729
  Transmission Date: 20140515
  Serious: Yes (Life-Threatening, Hospitalization)
  Sender: FDA-Public Use
  Company Number: None

PATIENT
  Age: 80 Year
  Sex: Male
  Weight: 68 kg

DRUGS (2)
  1. RIVAROXABAN [Suspect]
     Route: 048
     Dates: start: 20111201, end: 20130615
  2. ASPIRIN [Suspect]
     Dates: start: 20111201, end: 20130615

REACTIONS (4)
  - Hypoaesthesia [None]
  - Gait disturbance [None]
  - Cerebrovascular accident [None]
  - Cerebral haemorrhage [None]
